FAERS Safety Report 13153205 (Version 5)
Quarter: 2017Q3

REPORT INFORMATION
  Report Type: Spontaneous
  Country: US (occurrence: US)
  Receive Date: 20170126
  Receipt Date: 20170818
  Transmission Date: 20171127
  Serious: Yes (Other)
  Sender: FDA-Public Use
  Company Number: US-TEVA-733960ACC

PATIENT
  Sex: Female
  Weight: 59.47 kg

DRUGS (4)
  1. PARAGARD T 380A [Suspect]
     Active Substance: COPPER
     Indication: CONTRACEPTION
     Dates: start: 20120313, end: 20170117
  2. BIOTIN [Concomitant]
     Active Substance: BIOTIN
  3. MULTIVITAMINS [Concomitant]
     Active Substance: VITAMINS
  4. PROBIOTICA [Concomitant]
     Active Substance: PROBIOTICS NOS

REACTIONS (2)
  - Complication associated with device [Recovered/Resolved]
  - Device breakage [Recovered/Resolved]
